FAERS Safety Report 5595929-5 (Version None)
Quarter: 2008Q1

REPORT INFORMATION
  Report Type: 
  Country: None (occurrence: None)
  Receive Date: 20080118
  Receipt Date: 20080111
  Transmission Date: 20080703
  Serious: Yes (Other)
  Sender: FDA-Public Use
  Company Number: US-ASTRAZENECA-2008UW00869

PATIENT
  Age: 68 Year
  Sex: Female

DRUGS (4)
  1. ZOMIG [Suspect]
     Indication: MIGRAINE
     Route: 048
     Dates: start: 20030101
  2. ZOMIG [Suspect]
     Indication: HEADACHE
     Route: 048
     Dates: start: 20030101
  3. ZOMIG [Suspect]
     Dosage: DOSE FREQUENCY INCREASED
     Route: 048
     Dates: start: 20060101
  4. ZOMIG [Suspect]
     Dosage: DOSE FREQUENCY INCREASED
     Route: 048
     Dates: start: 20060101

REACTIONS (2)
  - HEADACHE [None]
  - THERAPEUTIC RESPONSE DECREASED [None]
